FAERS Safety Report 6561955-2 (Version None)
Quarter: 2010Q1

REPORT INFORMATION
  Report Type: 
  Country: None (occurrence: None)
  Receive Date: 20100130
  Receipt Date: 20091113
  Transmission Date: 20100710
  Serious: No
  Sender: FDA-Public Use
  Company Number: US-ABBOTT-09P-163-0593476-00

PATIENT
  Sex: Male
  Weight: 118.04 kg

DRUGS (6)
  1. HUMIRA [Suspect]
     Indication: CROHN'S DISEASE
     Route: 058
     Dates: start: 20090701
  2. ATARAX [Concomitant]
     Indication: PRURITUS
  3. ATARAX [Concomitant]
     Indication: LIVER DISORDER
  4. IMURAN [Concomitant]
     Indication: CROHN'S DISEASE
  5. AMITRIPTYLINE HCL [Concomitant]
     Indication: CROHN'S DISEASE
  6. RITALIN [Concomitant]
     Indication: ATTENTION DEFICIT/HYPERACTIVITY DISORDER

REACTIONS (3)
  - FACIAL PAIN [None]
  - HEADACHE [None]
  - TRIGEMINAL NEURALGIA [None]
